FAERS Safety Report 6592737-3 (Version None)
Quarter: 2010Q1

REPORT INFORMATION
  Report Type: 
  Country: None (occurrence: None)
  Receive Date: 20100212
  Receipt Date: 20100127
  Transmission Date: 20100710
  Serious: Yes (Life-Threatening)
  Sender: FDA-Public Use
  Company Number: IDA-00326

PATIENT
  Age: 56 Year
  Sex: Female

DRUGS (5)
  1. PROPRANOLOL [Suspect]
     Indication: HYPERTENSION
     Dosage: 17 TABLETS OF 10 MG, ORAL
     Route: 048
     Dates: start: 20100105, end: 20100105
  2. TEGRETOL [Concomitant]
  3. METFORMAX (METFORMIN HYDROCHLORIDE) [Concomitant]
  4. ATORVASTATIN CALCIUM [Concomitant]
  5. (FUROSEMIDE) [Concomitant]

REACTIONS (8)
  - AKINESIA [None]
  - AORTIC VALVE INCOMPETENCE [None]
  - ATRIOVENTRICULAR BLOCK COMPLETE [None]
  - CARDIOGENIC SHOCK [None]
  - LEFT VENTRICULAR DYSFUNCTION [None]
  - MITRAL VALVE INCOMPETENCE [None]
  - SINUS BRADYCARDIA [None]
  - THERAPEUTIC AGENT TOXICITY [None]
